FAERS Safety Report 16814402 (Version 1)
Quarter: 2019Q3

REPORT INFORMATION
  Report Type: Spontaneous
  Country: US (occurrence: US)
  Receive Date: 20190917
  Receipt Date: 20190917
  Transmission Date: 20191005
  Serious: No
  Sender: FDA-Public Use
  Company Number: US-ALLERGAN-1906269US

PATIENT
  Age: 45 Year
  Sex: Female

DRUGS (8)
  1. LINZESS [Suspect]
     Active Substance: LINACLOTIDE
     Indication: IRRITABLE BOWEL SYNDROME
     Dosage: UNK, QD
     Route: 048
     Dates: start: 2018
  2. IRON [Concomitant]
     Active Substance: IRON
     Indication: BLOOD IRON DECREASED
     Dosage: UNK
     Route: 065
  3. VITAMIN D [Concomitant]
     Active Substance: VITAMIN D NOS
     Indication: VITAMIN D DEFICIENCY
     Dosage: UNK
     Route: 065
  4. LAMOTRIGINE. [Concomitant]
     Active Substance: LAMOTRIGINE
     Indication: SEIZURE
     Dosage: 100 MG,2 TABS BID
     Route: 048
  5. STOOL SOFTENER (DOCUSATE) [Concomitant]
     Active Substance: DOCUSATE
     Dosage: UNK, BID
     Route: 065
  6. QUETIAPINE. [Concomitant]
     Active Substance: QUETIAPINE
     Indication: SLEEP DISORDER
     Dosage: 100 MG, QHS
     Route: 048
  7. LAMOTRIGINE. [Concomitant]
     Active Substance: LAMOTRIGINE
     Indication: AFFECTIVE DISORDER
  8. QUETIAPINE XR [Concomitant]
     Active Substance: QUETIAPINE
     Indication: AFFECTIVE DISORDER
     Dosage: 300MG, 2 TABS QAM
     Route: 048

REACTIONS (8)
  - Urine odour abnormal [Not Recovered/Not Resolved]
  - Adverse event [Unknown]
  - Trichomoniasis [Unknown]
  - Faeces discoloured [Not Recovered/Not Resolved]
  - Product dose omission [Unknown]
  - Anal pruritus [Unknown]
  - Anorectal disorder [Unknown]
  - Fungal infection [Unknown]

NARRATIVE: CASE EVENT DATE: 201907
